FAERS Safety Report 9736724 (Version 1)
Quarter: 2013Q4

REPORT INFORMATION
  Report Type: Spontaneous
  Country: US (occurrence: US)
  Receive Date: 20131206
  Receipt Date: 20131206
  Transmission Date: 20140711
  Serious: Yes (Hospitalization, Other)
  Sender: FDA-Public Use
  Company Number: US-TARO-2013P1021234

PATIENT
  Age: 74 Year
  Sex: Male
  Weight: 68.04 kg

DRUGS (7)
  1. WARFARIN SODIUM TABLETS USP 2MG [Suspect]
     Indication: ATRIAL FIBRILLATION
     Route: 048
     Dates: start: 2009
  2. WARFARIN SODIUM TABLETS USP 2MG [Suspect]
     Indication: ATRIAL FIBRILLATION
     Route: 048
     Dates: start: 2009
  3. ATENOLOL [Concomitant]
  4. LIPITOR [Concomitant]
  5. VITAMINS [Concomitant]
  6. FISH OIL [Concomitant]
  7. MAGNESIUM [Concomitant]

REACTIONS (4)
  - Vein discolouration [Not Recovered/Not Resolved]
  - Cellulitis [Recovering/Resolving]
  - Impaired work ability [Not Recovered/Not Resolved]
  - Sciatica [Not Recovered/Not Resolved]
